FAERS Safety Report 9337738 (Version 2)
Quarter: 2013Q3

REPORT INFORMATION
  Report Type: Spontaneous
  Country: US (occurrence: US)
  Receive Date: 20130607
  Receipt Date: 20130731
  Transmission Date: 20140515
  Serious: Yes (Other)
  Sender: FDA-Public Use
  Company Number: US-ALLERGAN-1307888US

PATIENT
  Age: 32 Year
  Sex: Male

DRUGS (1)
  1. REFRESH TEARS [Suspect]
     Indication: EYE LUBRICATION THERAPY
     Dosage: 2 GTT, 6-10 TIMES PER DAY
     Route: 047
     Dates: start: 2012

REACTIONS (2)
  - Urticaria [Recovered/Resolved]
  - Eye irritation [Recovered/Resolved]
